FAERS Safety Report 23650439 (Version 1)
Quarter: 2024Q1

REPORT INFORMATION
  Report Type: Report from Study
  Country: US (occurrence: US)
  Receive Date: 20240320
  Receipt Date: 20240320
  Transmission Date: 20240409
  Serious: Yes (Hospitalization)
  Sender: FDA-Public Use
  Company Number: US-GENMAB-2024-00890

PATIENT
  Age: 80 Year
  Sex: Male

DRUGS (2)
  1. EPKINLY [Suspect]
     Active Substance: EPCORITAMAB-BYSP
     Indication: Diffuse large B-cell lymphoma
     Dosage: 0.16 MILLIGRAM (FOR FIRST 7 DAYS)
     Route: 065
     Dates: start: 20240219
  2. EPKINLY [Suspect]
     Active Substance: EPCORITAMAB-BYSP
     Dosage: 0.8 MILLIGRAM (DAY 08 ONWARDS)
     Route: 065
     Dates: start: 2024

REACTIONS (1)
  - Toxicity to various agents [Unknown]
